FAERS Safety Report 4428959-7 (Version None)
Quarter: 2004Q3

REPORT INFORMATION
  Report Type: 
  Country: None (occurrence: None)
  Receive Date: 20040818
  Receipt Date: 20040628
  Transmission Date: 20050211
  Serious: No
  Sender: FDA-Public Use
  Company Number: US-GLAXOSMITHKLINE-A0516254A

PATIENT
  Age: 45 Year
  Sex: Female

DRUGS (7)
  1. LOTRONEX [Suspect]
     Indication: IRRITABLE BOWEL SYNDROME
     Dosage: 1MG TWICE PER DAY
     Route: 048
     Dates: start: 20021101
  2. PROTONIX [Concomitant]
  3. LIPITOR [Concomitant]
  4. PLAQUENIL [Concomitant]
  5. WELLBUTRIN [Concomitant]
  6. VIOXX [Concomitant]
  7. SPIRONOLACTONE [Concomitant]

REACTIONS (2)
  - ABDOMINAL PAIN [None]
  - DIARRHOEA [None]
